FAERS Safety Report 15515046 (Version 2)
Quarter: 2018Q4

REPORT INFORMATION
  Report Type: Spontaneous
  Country: US (occurrence: US)
  Receive Date: 20181017
  Receipt Date: 20181212
  Transmission Date: 20190205
  Serious: Yes (Death, Other)
  Sender: FDA-Public Use
  Company Number: US-BRISTOL-MYERS SQUIBB COMPANY-BMS-2018-093083

PATIENT
  Sex: Male
  Weight: 117 kg

DRUGS (2)
  1. YERVOY [Suspect]
     Active Substance: IPILIMUMAB
     Indication: LUNG NEOPLASM MALIGNANT
     Dosage: 130 MG, UNK
     Route: 042
     Dates: start: 20180601, end: 20180712
  2. YERVOY [Suspect]
     Active Substance: IPILIMUMAB
     Indication: METASTASES TO BONE
     Route: 065

REACTIONS (1)
  - Malignant neoplasm progression [Fatal]
